FAERS Safety Report 23916266 (Version 1)
Quarter: 2024Q2

REPORT INFORMATION
  Report Type: Spontaneous
  Country: CN (occurrence: CN)
  Receive Date: 20240529
  Receipt Date: 20240529
  Transmission Date: 20240716
  Serious: Yes (Other)
  Sender: FDA-Public Use
  Company Number: CN-AMERICAN REGENT INC-2024001980

PATIENT
  Age: 83 Year
  Sex: Male
  Weight: 65 kg

DRUGS (2)
  1. VENOFER [Suspect]
     Active Substance: IRON SUCROSE
     Indication: Iron deficiency anaemia
     Dosage: 5 ML (100 MG) (100 MG, 1 IN 1 D)
     Dates: start: 20240509, end: 20240509
  2. VENOFER [Suspect]
     Active Substance: IRON SUCROSE
     Dosage: 5 ML (100 MG); SUBSEQUENT DOSE (100 MG, 1 IN 1 D)
     Dates: start: 20240510, end: 20240510

REACTIONS (1)
  - Vertigo [Recovering/Resolving]

NARRATIVE: CASE EVENT DATE: 20240510
